FAERS Safety Report 7552001-2 (Version None)
Quarter: 2011Q2

REPORT INFORMATION
  Report Type: 
  Country: None (occurrence: None)
  Receive Date: 20110616
  Receipt Date: 20110608
  Transmission Date: 20111010
  Serious: Yes (Other)
  Sender: FDA-Public Use
  Company Number: US-BAYER-2011-049624

PATIENT
  Age: 50 Year
  Sex: Male

DRUGS (5)
  1. DOCUSATE [Concomitant]
     Dosage: 100 MG, BID
     Dates: start: 20110314
  2. NEXAVAR [Suspect]
     Indication: HEPATIC NEOPLASM MALIGNANT
     Dosage: 400 MG, BID
     Dates: start: 20110315, end: 20110501
  3. PROPRANOLOL [Concomitant]
     Dosage: 3 10 MG TABLETS DAILY
     Dates: start: 20110314
  4. OMEPRAZOLE [Concomitant]
     Dosage: 20 MG, QD
     Dates: start: 20110314
  5. METFORMIN HCL [Concomitant]
     Dosage: 500 MG, BID
     Dates: start: 20110314

REACTIONS (1)
  - ANAEMIA [None]
